FAERS Safety Report 4360653-3 (Version None)
Quarter: 2004Q2

REPORT INFORMATION
  Report Type: 
  Country: None (occurrence: None)
  Receive Date: 20040518
  Receipt Date: 20040518
  Transmission Date: 20050107
  Serious: Yes (Life-Threatening)
  Sender: FDA-Public Use
  Company Number: None

PATIENT
  Age: 57 Year
  Sex: Female
  Weight: 65.318 kg

DRUGS (1)
  1. ZYPREXA [Suspect]
     Indication: PARANOIA

REACTIONS (1)
  - UNEVALUABLE EVENT [None]
